FAERS Safety Report 25214706 (Version 4)
Quarter: 2025Q4

REPORT INFORMATION
  Report Type: Spontaneous
  Country: US (occurrence: US)
  Receive Date: 20250418
  Receipt Date: 20251020
  Transmission Date: 20260118
  Serious: Yes (Other)
  Sender: PFIZER
  Company Number: US-PFIZER INC-202500082575

PATIENT
  Age: 72 Year
  Sex: Female

DRUGS (2)
  1. IBRANCE [Suspect]
     Active Substance: PALBOCICLIB
     Dosage: 125 MG DAILY, THREE WEEKS ON AND 7 DAYS OFF
  2. IBRANCE [Suspect]
     Active Substance: PALBOCICLIB
     Dosage: 75 MG TABLETS, DAILY, 21 DAYS ON, 7 DAYS OFF

REACTIONS (4)
  - Fall [Unknown]
  - Foot fracture [Unknown]
  - Malignant neoplasm progression [Unknown]
  - Cough [Unknown]
